FAERS Safety Report 23517155 (Version 2)
Quarter: 2024Q1

REPORT INFORMATION
  Report Type: Spontaneous
  Country: US (occurrence: US)
  Receive Date: 20240213
  Receipt Date: 20240315
  Transmission Date: 20240410
  Serious: No
  Sender: FDA-Public Use
  Company Number: US-PFIZER INC-PV202400018574

PATIENT
  Age: 70 Year
  Sex: Female

DRUGS (10)
  1. IBRANCE [Suspect]
     Active Substance: PALBOCICLIB
     Dosage: DAY FOR 21 DAYS AND THEN 7 DAYS OFF
     Route: 048
     Dates: start: 20220720, end: 2024
  2. IBRANCE [Suspect]
     Active Substance: PALBOCICLIB
     Dosage: DAY FOR 21 DAYS AND THEN 7 DAYS OFF
     Route: 048
     Dates: start: 2024, end: 20240306
  3. ONDANSETRON [Concomitant]
     Active Substance: ONDANSETRON
  4. BIOTIN [Concomitant]
     Active Substance: BIOTIN
  5. XARELTO [Concomitant]
     Active Substance: RIVAROXABAN
  6. ANASTROZOLE [Concomitant]
     Active Substance: ANASTROZOLE
  7. SYNTHROID [Concomitant]
     Active Substance: LEVOTHYROXINE SODIUM
  8. ORSERDU [Concomitant]
     Active Substance: ELACESTRANT
  9. ZOFRAN [Concomitant]
     Active Substance: ONDANSETRON HYDROCHLORIDE
  10. MINERALS\VITAMINS [Concomitant]
     Active Substance: MINERALS\VITAMINS

REACTIONS (2)
  - White blood cell count decreased [Unknown]
  - Red blood cell count decreased [Unknown]

NARRATIVE: CASE EVENT DATE: 20240101
